FAERS Safety Report 6818283-7 (Version None)
Quarter: 2010Q3

REPORT INFORMATION
  Report Type: 
  Country: None (occurrence: None)
  Receive Date: 20100706
  Receipt Date: 20071119
  Transmission Date: 20110219
  Serious: Yes (Other)
  Sender: FDA-Public Use
  Company Number: US-PFIZER INC-2007097586

PATIENT
  Age: 58 Year
  Sex: Male

DRUGS (2)
  1. ZITHROMAX [Suspect]
     Indication: RESPIRATORY TRACT INFECTION
     Dates: start: 20071113
  2. DRUG, UNSPECIFIED [Concomitant]

REACTIONS (1)
  - DEAFNESS [None]
